FAERS Safety Report 5814536-X (Version None)
Quarter: 2008Q3

REPORT INFORMATION
  Report Type: 
  Country: None (occurrence: None)
  Receive Date: 20080718
  Receipt Date: 20070604
  Transmission Date: 20090109
  Serious: No
  Sender: FDA-Public Use
  Company Number: US-KINGPHARMUSA00001-K200700686

PATIENT

DRUGS (5)
  1. LEVOXYL [Suspect]
     Indication: HYPOTHYROIDISM
     Dosage: 50 MCG, QD
     Route: 048
     Dates: start: 20040301, end: 20050601
  2. LEVOXYL [Suspect]
     Dosage: 25 MCG, QD
     Route: 048
     Dates: start: 20061001
  3. LEVOXYL [Suspect]
     Dosage: 50 MCG, QD
     Route: 048
  4. LEVOXYL [Suspect]
     Dosage: 75 MCG, QD
     Route: 048
  5. DIGESTIVES ENZYMES [Concomitant]
     Dosage: UNK, QD
     Route: 048

REACTIONS (12)
  - BLOOD THYROID STIMULATING HORMONE INCREASED [None]
  - DEPRESSION [None]
  - FATIGUE [None]
  - FEELING ABNORMAL [None]
  - FLUID RETENTION [None]
  - LIPOEDEMA [None]
  - MYALGIA [None]
  - OEDEMA [None]
  - SKIN DISORDER [None]
  - SWELLING [None]
  - WEIGHT DECREASED [None]
  - WEIGHT INCREASED [None]
